FAERS Safety Report 23126397 (Version 1)
Quarter: 2023Q4

REPORT INFORMATION
  Report Type: Spontaneous
  Country: GB (occurrence: GB)
  Receive Date: 20231030
  Receipt Date: 20231030
  Transmission Date: 20240110
  Serious: Yes (Other)
  Sender: FDA-Public Use
  Company Number: None

PATIENT
  Age: 64 Year
  Sex: Female
  Weight: 70 kg

DRUGS (5)
  1. OXYBUTYNIN [Suspect]
     Active Substance: OXYBUTYNIN
     Indication: Product used for unknown indication
     Dosage: 5 MILLIGRAM
     Route: 065
  2. BENOXINATE [Suspect]
     Active Substance: BENOXINATE
     Indication: Product used for unknown indication
     Dosage: 0.4 PERCENT (0.5ML UNIT DOSE PRESERVATIVE FREE)
     Route: 065
     Dates: start: 20230718
  3. FESOTERODINE FUMARATE [Concomitant]
     Active Substance: FESOTERODINE FUMARATE
     Dosage: 1 DOSAGE FORM, QD
     Route: 065
     Dates: start: 20230801
  4. FLUOXETINE [Concomitant]
     Active Substance: FLUOXETINE HYDROCHLORIDE
     Dosage: 2 DOSAGE FORM, QD
     Route: 065
     Dates: start: 20230801
  5. SIMVASTATIN [Concomitant]
     Active Substance: SIMVASTATIN
     Dosage: 1 DOSAGE FORM, QD (NIGHT)
     Route: 065
     Dates: start: 20230801

REACTIONS (1)
  - Drug intolerance [Recovering/Resolving]
